FAERS Safety Report 25254809 (Version 1)
Quarter: 2025Q2

REPORT INFORMATION
  Report Type: Spontaneous
  Country: US (occurrence: None)
  Receive Date: 20250430
  Receipt Date: 20250430
  Transmission Date: 20250716
  Serious: Yes (Hospitalization)
  Sender: FDA-CTU
  Company Number: None

PATIENT
  Age: 54 Year
  Sex: Male
  Weight: 101.5 kg

DRUGS (1)
  1. XELODA [Suspect]
     Active Substance: CAPECITABINE
     Dates: end: 20250424

REACTIONS (6)
  - Pain [None]
  - Abdominal pain [None]
  - Nausea [None]
  - Vomiting [None]
  - Colitis [None]
  - Large intestine infection [None]

NARRATIVE: CASE EVENT DATE: 20250428
